FAERS Safety Report 13067178 (Version 1)
Quarter: 2016Q4

REPORT INFORMATION
  Report Type: Report from Study
  Country: US (occurrence: US)
  Receive Date: 20161227
  Receipt Date: 20161227
  Transmission Date: 20170207
  Serious: Yes (Death, Other)
  Sender: FDA-Public Use
  Company Number: US-ARIAD-2016US007216

PATIENT
  Sex: Male

DRUGS (1)
  1. ICLUSIG [Suspect]
     Active Substance: PONATINIB
     Indication: CHRONIC LEUKAEMIA
     Dosage: 45 MG, QD
     Route: 048
     Dates: start: 20160822

REACTIONS (3)
  - Death [Fatal]
  - Pain in extremity [Not Recovered/Not Resolved]
  - Chemotherapy [Not Recovered/Not Resolved]
